FAERS Safety Report 7645069-6 (Version None)
Quarter: 2011Q3

REPORT INFORMATION
  Report Type: 
  Country: None (occurrence: None)
  Receive Date: 20110729
  Receipt Date: 20110721
  Transmission Date: 20111222
  Serious: Yes (Hospitalization)
  Sender: FDA-Public Use
  Company Number: US-BAYER-201034364NA

PATIENT
  Age: 27 Year
  Sex: Female
  Weight: 75.737 kg

DRUGS (5)
  1. YASMIN [Suspect]
     Indication: POLYCYSTIC OVARIES
     Dosage: UNK UNK, QD
     Route: 048
     Dates: start: 20080307, end: 20080727
  2. DROSPIRENONE AND ETHINYL ESTRADIOL [Suspect]
     Indication: POLYCYSTIC OVARIES
     Route: 048
     Dates: start: 20080727, end: 20080814
  3. YASMIN [Suspect]
     Route: 048
     Dates: start: 20021204, end: 20030708
  4. YASMIN [Suspect]
  5. ASCORBIC ACID [Concomitant]

REACTIONS (5)
  - VARICOSE VEIN [None]
  - DEEP VEIN THROMBOSIS [None]
  - PAIN [None]
  - PULMONARY EMBOLISM [None]
  - OEDEMA PERIPHERAL [None]
